FAERS Safety Report 16918424 (Version 1)
Quarter: 2019Q4

REPORT INFORMATION
  Report Type: Spontaneous
  Country: ES (occurrence: ES)
  Receive Date: 20191015
  Receipt Date: 20191015
  Transmission Date: 20200122
  Serious: Yes (Other)
  Sender: FDA-Public Use
  Company Number: ES-ALVOGEN-2019-ALVOGEN-101647

PATIENT
  Age: 82 Year
  Sex: Female

DRUGS (2)
  1. PREDNISONE. [Interacting]
     Active Substance: PREDNISONE
     Indication: BRONCHOPULMONARY ASPERGILLOSIS ALLERGIC
  2. VORICONAZOLE. [Suspect]
     Active Substance: VORICONAZOLE
     Indication: BRONCHOPULMONARY ASPERGILLOSIS ALLERGIC

REACTIONS (6)
  - Hepatotoxicity [Recovered/Resolved]
  - Drug level increased [Recovering/Resolving]
  - Myalgia [Recovered/Resolved]
  - Photophobia [Recovered/Resolved]
  - Drug interaction [Recovering/Resolving]
  - Hyponatraemia [Recovering/Resolving]
